FAERS Safety Report 5594106-1 (Version None)
Quarter: 2008Q1

REPORT INFORMATION
  Report Type: 
  Country: None (occurrence: None)
  Receive Date: 20080116
  Receipt Date: 20080106
  Transmission Date: 20080703
  Serious: Yes (Other)
  Sender: FDA-Public Use
  Company Number: US-PFIZER INC-2008002623

PATIENT
  Sex: Male
  Weight: 58.5 kg

DRUGS (10)
  1. CHANTIX [Suspect]
     Indication: SMOKING CESSATION THERAPY
     Dates: start: 20070801, end: 20071227
  2. OXYCODONE [Concomitant]
  3. ROXICET [Concomitant]
  4. HYOSCYAMINE [Concomitant]
  5. IBUPROFEN [Concomitant]
  6. TEMAZEPAM [Concomitant]
  7. DIPHENOXYLATE [Concomitant]
  8. LORAZEPAM [Concomitant]
  9. TAMSULOSIN HCL [Concomitant]
  10. HYDROCODONE [Concomitant]

REACTIONS (4)
  - AGGRESSION [None]
  - ANGER [None]
  - DYSPNOEA [None]
  - INCOHERENT [None]
